FAERS Safety Report 25904179 (Version 2)
Quarter: 2025Q4

REPORT INFORMATION
  Report Type: Spontaneous
  Country: JP (occurrence: JP)
  Receive Date: 20251010
  Receipt Date: 20251010
  Transmission Date: 20260117
  Serious: Yes (Hospitalization, Other)
  Sender: MERCK SHARP & DOHME LLC
  Company Number: JP-009507513-2263073

PATIENT
  Age: 57 Year
  Sex: Male

DRUGS (4)
  1. KEYTRUDA [Suspect]
     Active Substance: PEMBROLIZUMAB
     Indication: Lung adenocarcinoma stage III
     Dosage: 200 MG ONCE EVERY 3 WEEKS (Q3W)
     Route: 041
     Dates: start: 20241220, end: 20241220
  2. KEYTRUDA [Suspect]
     Active Substance: PEMBROLIZUMAB
     Indication: Lung adenocarcinoma stage III
     Dosage: 200 MG ONCE EVERY 3 WEEKS (Q3W)
     Route: 041
     Dates: start: 202502, end: 202502
  3. KEYTRUDA [Suspect]
     Active Substance: PEMBROLIZUMAB
     Indication: Lung adenocarcinoma stage III
     Dosage: POSTOPERATIVE
     Dates: start: 2025, end: 2025
  4. PEMETREXED [Suspect]
     Active Substance: PEMETREXED

REACTIONS (6)
  - Lung adenocarcinoma recurrent [Unknown]
  - Immune-mediated hepatitis [Recovering/Resolving]
  - Therapy partial responder [Unknown]
  - Coronavirus test positive [Unknown]
  - Drug-induced liver injury [Recovering/Resolving]
  - Haematology test abnormal [Unknown]

NARRATIVE: CASE EVENT DATE: 20250101
